FAERS Safety Report 4479840-9 (Version None)
Quarter: 2004Q3

REPORT INFORMATION
  Report Type: 
  Country: None (occurrence: None)
  Receive Date: 20040923
  Receipt Date: 20040528
  Transmission Date: 20050211
  Serious: No
  Sender: FDA-Public Use
  Company Number: USA040464413

PATIENT
  Sex: Female

DRUGS (1)
  1. FORTEO [Suspect]
     Dates: start: 20040101

REACTIONS (4)
  - ABDOMINAL PAIN [None]
  - HEART RATE INCREASED [None]
  - HEART RATE IRREGULAR [None]
  - INJECTION SITE PAIN [None]
